FAERS Safety Report 13402653 (Version 9)
Quarter: 2017Q3

REPORT INFORMATION
  Report Type: Spontaneous
  Country: US (occurrence: US)
  Receive Date: 20170404
  Receipt Date: 20170824
  Transmission Date: 20171127
  Serious: Yes (Hospitalization)
  Sender: FDA-Public Use
  Company Number: US-ACTELION-A-US2017-151376

PATIENT
  Age: 52 Year
  Sex: Female

DRUGS (14)
  1. SILDENAFIL. [Concomitant]
     Active Substance: SILDENAFIL
     Dosage: 80 MG, TID
     Dates: start: 20170215
  2. SILDENAFIL. [Concomitant]
     Active Substance: SILDENAFIL
     Dosage: 20 MG, TID
     Dates: start: 20170123
  3. REMODULIN [Suspect]
     Active Substance: TREPROSTINIL
     Indication: PRODUCT USED FOR UNKNOWN INDICATION
     Dosage: 25.7 NG/KG, PER MIN
     Route: 042
     Dates: start: 20170408
  4. REMODULIN [Suspect]
     Active Substance: TREPROSTINIL
     Dosage: 21.2 NG/KG, PER MIN
     Route: 042
     Dates: start: 20170308
  5. REMODULIN [Suspect]
     Active Substance: TREPROSTINIL
     Dosage: 49 NG/KG, PER MIN
     Route: 042
     Dates: start: 20170117
  6. SILDENAFIL. [Concomitant]
     Active Substance: SILDENAFIL
     Dosage: 80 MG, TID
     Dates: start: 20170322
  7. ADEMPAS [Suspect]
     Active Substance: RIOCIGUAT
     Indication: PRODUCT USED FOR UNKNOWN INDICATION
     Route: 065
  8. DICYCLOMINE [Concomitant]
     Active Substance: DICYCLOMINE HYDROCHLORIDE
  9. REMODULIN [Suspect]
     Active Substance: TREPROSTINIL
     Dosage: 17.5 NG/KG, PER MIN
     Route: 042
     Dates: start: 20170214
  10. REMODULIN [Suspect]
     Active Substance: TREPROSTINIL
     Dosage: 40.1 NG/KG, PER MIN
     Route: 042
     Dates: start: 20170117
  11. OPSUMIT [Suspect]
     Active Substance: MACITENTAN
     Indication: PULMONARY ARTERIAL HYPERTENSION
     Dosage: 10 MG, QD
     Route: 048
     Dates: start: 20150410
  12. FLAGYL [Suspect]
     Active Substance: METRONIDAZOLE\METRONIDAZOLE HYDROCHLORIDE
     Indication: CLOSTRIDIUM DIFFICILE INFECTION
     Route: 065
  13. REMODULIN [Suspect]
     Active Substance: TREPROSTINIL
     Dosage: 49.1 NG/KG, PER MIN
     Route: 042
     Dates: start: 20170214
  14. IMODIUM [Concomitant]
     Active Substance: LOPERAMIDE HYDROCHLORIDE

REACTIONS (11)
  - Hypotension [Not Recovered/Not Resolved]
  - Diarrhoea [Not Recovered/Not Resolved]
  - Decreased appetite [Not Recovered/Not Resolved]
  - Syncope [Not Recovered/Not Resolved]
  - Clostridium difficile infection [Not Recovered/Not Resolved]
  - Nausea [Recovering/Resolving]
  - Fluid retention [Not Recovered/Not Resolved]
  - Abdominal distension [Not Recovered/Not Resolved]
  - Dyspnoea [Recovering/Resolving]
  - Gastrointestinal disorder [Recovered/Resolved]
  - Abdominal discomfort [Not Recovered/Not Resolved]

NARRATIVE: CASE EVENT DATE: 20170214
